FAERS Safety Report 14133678 (Version 1)
Quarter: 2017Q4

REPORT INFORMATION
  Report Type: Spontaneous
  Country: FR (occurrence: FR)
  Receive Date: 20171027
  Receipt Date: 20171027
  Transmission Date: 20180321
  Serious: Yes (Hospitalization, Other)
  Sender: FDA-Public Use
  Company Number: FR-BRISTOL-MYERS SQUIBB COMPANY-BMS-2017-093830

PATIENT
  Age: 97 Year
  Sex: Female

DRUGS (1)
  1. COUMADINE [Suspect]
     Active Substance: WARFARIN SODIUM
     Indication: PULMONARY EMBOLISM
     Dosage: UNK
     Route: 048
     Dates: end: 20170816

REACTIONS (7)
  - Traumatic haematoma [Recovering/Resolving]
  - Haemorrhagic anaemia [Recovering/Resolving]
  - Fall [Unknown]
  - Upper limb fracture [Unknown]
  - Confusional state [Unknown]
  - International normalised ratio increased [Recovered/Resolved]
  - Overdose [Unknown]

NARRATIVE: CASE EVENT DATE: 20170816
